FAERS Safety Report 9753363 (Version 1)
Quarter: 2013Q4

REPORT INFORMATION
  Report Type: Spontaneous
  Country: US (occurrence: US)
  Receive Date: 20131213
  Receipt Date: 20131213
  Transmission Date: 20140711
  Serious: Yes (Other)
  Sender: FDA-Public Use
  Company Number: US-TEVA-405822USA

PATIENT
  Age: 22 Year
  Sex: Female

DRUGS (3)
  1. PARAGARD 380A [Suspect]
     Indication: CONTRACEPTION
     Route: 015
     Dates: start: 20130419, end: 20130419
  2. LANTUS [Concomitant]
     Indication: DIABETES MELLITUS
  3. NOVALOG [Concomitant]
     Indication: DIABETES MELLITUS

REACTIONS (1)
  - Uterine perforation [Recovered/Resolved]
